FAERS Safety Report 8574707-9 (Version None)
Quarter: 2012Q3

REPORT INFORMATION
  Report Type: 
  Country: None (occurrence: None)
  Receive Date: 20120807
  Receipt Date: 20120723
  Transmission Date: 20120928
  Serious: Yes (Hospitalization)
  Sender: FDA-Public Use
  Company Number: AT-BIOGENIDEC-2012BI020777

PATIENT
  Age: 48 Year
  Sex: Male

DRUGS (6)
  1. NEUPRO [Concomitant]
  2. MAGNESIUM [Concomitant]
  3. EZETIMIBE [Concomitant]
  4. TYSABRI [Suspect]
     Indication: RELAPSING-REMITTING MULTIPLE SCLEROSIS
     Route: 042
     Dates: start: 20111101, end: 20120401
  5. TYSABRI [Suspect]
     Route: 042
     Dates: start: 20120606
  6. TAMSULOSIN HCL [Concomitant]

REACTIONS (1)
  - EOSINOPHILIA [None]
